FAERS Safety Report 19012201 (Version 1)
Quarter: 2021Q1

REPORT INFORMATION
  Report Type: Spontaneous
  Country: MX (occurrence: MX)
  Receive Date: 20210315
  Receipt Date: 20210315
  Transmission Date: 20210420
  Serious: Yes (Disabling)
  Sender: FDA-Public Use
  Company Number: None

PATIENT
  Age: 36 Year
  Sex: Female
  Weight: 86 kg

DRUGS (2)
  1. IBUPROFEN. [Concomitant]
     Active Substance: IBUPROFEN
  2. CLINDAMICINA (AMONADIN) CAPSULA 300MG [Suspect]
     Active Substance: CLINDAMYCIN
     Indication: TOOTH INFECTION
     Dosage: ?          OTHER STRENGTH:300MG;QUANTITY:1 DF DOSAGE FORM;OTHER FREQUENCY:1 CADA 8 HRS;?
     Route: 048
     Dates: start: 20210313, end: 20210314

REACTIONS (7)
  - Dizziness [None]
  - Chest pain [None]
  - Headache [None]
  - Odynophagia [None]
  - Malaise [None]
  - Abdominal pain [None]
  - Tachycardia [None]

NARRATIVE: CASE EVENT DATE: 20210313
